FAERS Safety Report 24697297 (Version 5)
Quarter: 2024Q4

REPORT INFORMATION
  Report Type: Report from Study
  Country: CA (occurrence: CA)
  Receive Date: 20241204
  Receipt Date: 20241221
  Transmission Date: 20250115
  Serious: Yes (Hospitalization, Disabling, Other)
  Sender: HLS THERAPEUTICS
  Company Number: CA-HLS-202402990

PATIENT
  Age: 70 Year
  Sex: Male

DRUGS (4)
  1. CLOZARIL [Suspect]
     Active Substance: CLOZAPINE
     Indication: Schizophrenia
     Route: 048
     Dates: end: 20241205
  2. CLOZARIL [Suspect]
     Active Substance: CLOZAPINE
     Indication: Schizophrenia
     Dosage: 550MG ONCE A DAY
     Route: 048
     Dates: start: 19931212
  3. CLOZARIL [Suspect]
     Active Substance: CLOZAPINE
     Indication: Schizophrenia
     Dosage: CLOZAPINE REDUCTION??REDUCED CLOZARIL AT 400 MG ONCE A DAY AND ON 29-NOV-2024 AT 300 MG ONCE A DAY
     Route: 048
     Dates: end: 20241202
  4. VANCOMYCIN [Concomitant]
     Active Substance: VANCOMYCIN
     Indication: Product used for unknown indication
     Route: 065
     Dates: end: 20241204

REACTIONS (6)
  - Femur fracture [Unknown]
  - Neutropenia [Recovering/Resolving]
  - Constipation [Unknown]
  - Loss of personal independence in daily activities [Unknown]
  - C-reactive protein increased [Unknown]
  - Leukopenia [Not Recovered/Not Resolved]
